FAERS Safety Report 6152670-8 (Version None)
Quarter: 2009Q2

REPORT INFORMATION
  Report Type: 
  Country: None (occurrence: None)
  Receive Date: 20090413
  Receipt Date: 20090327
  Transmission Date: 20091009
  Serious: No
  Sender: FDA-Public Use
  Company Number: US-BAYER-200915297NA

PATIENT
  Sex: Male

DRUGS (1)
  1. LEUKINE [Suspect]
     Indication: HODGKIN'S DISEASE
     Dates: start: 20090311

REACTIONS (2)
  - ABDOMINAL PAIN [None]
  - DIARRHOEA [None]
